FAERS Safety Report 23020456 (Version 1)
Quarter: 2023Q4

REPORT INFORMATION
  Report Type: Other
  Country: None (occurrence: JP)
  Receive Date: 20231003
  Receipt Date: 20231003
  Transmission Date: 20240110
  Serious: Yes (Hospitalization, Other)
  Sender: FDA-Public Use
  Company Number: JP-Marksans Pharma Limited-2146573

PATIENT
  Age: 75 Year
  Sex: Male

DRUGS (2)
  1. GABAPENTIN [Suspect]
     Active Substance: GABAPENTIN
     Indication: Post-traumatic epilepsy
     Route: 065
  2. PHENYTOIN [Suspect]
     Active Substance: PHENYTOIN
     Route: 065

REACTIONS (3)
  - Hypothyroidism [Recovered/Resolved]
  - Atrial fibrillation [Unknown]
  - Thyroid mass [Unknown]
